FAERS Safety Report 11685127 (Version 1)
Quarter: 2015Q4

REPORT INFORMATION
  Report Type: Spontaneous
  Country: CA (occurrence: CA)
  Receive Date: 20151030
  Receipt Date: 20151030
  Transmission Date: 20160304
  Serious: Yes (Other)
  Sender: FDA-Public Use
  Company Number: CA-AUROBINDO-AUR-APL-2015-09503

PATIENT
  Age: 37 Year
  Sex: Male

DRUGS (2)
  1. PAROXETINE [Suspect]
     Active Substance: PAROXETINE\PAROXETINE HYDROCHLORIDE
     Indication: PANIC DISORDER
     Dosage: 20 MG, DAILY
     Route: 065
  2. PAROXETINE [Suspect]
     Active Substance: PAROXETINE\PAROXETINE HYDROCHLORIDE
     Indication: AGORAPHOBIA
     Dosage: 10 MG, AT BED TIME
     Route: 065

REACTIONS (7)
  - Diarrhoea [Recovering/Resolving]
  - Anxiety [Recovering/Resolving]
  - Headache [Recovering/Resolving]
  - Cyclothymic disorder [Recovering/Resolving]
  - Nervousness [Recovering/Resolving]
  - Tension [Recovering/Resolving]
  - Drug withdrawal syndrome [Recovering/Resolving]
